FAERS Safety Report 7437318-4 (Version None)
Quarter: 2011Q2

REPORT INFORMATION
  Report Type: 
  Country: None (occurrence: None)
  Receive Date: 20110426
  Receipt Date: 20110411
  Transmission Date: 20111010
  Serious: Yes (Other)
  Sender: FDA-Public Use
  Company Number: DE-CELGENEUS-062-50794-11041227

PATIENT
  Sex: Male

DRUGS (14)
  1. BETAMETHASONE [Concomitant]
     Route: 065
  2. PANTOZOL [Concomitant]
     Dosage: 20 MILLIGRAM
     Route: 048
  3. CALCILAC [Concomitant]
     Route: 065
  4. CONCOR [Concomitant]
     Dosage: 5 MILLIGRAM
     Route: 065
  5. URSO FALK [Concomitant]
     Dosage: 750 MILLIGRAM
     Route: 065
  6. VIDAZA [Suspect]
     Indication: ACUTE MYELOID LEUKAEMIA
     Route: 065
     Dates: start: 20100610
  7. ARTELAC [Concomitant]
     Route: 065
  8. SIFROL [Concomitant]
     Dosage: .36 MILLIGRAM
     Route: 065
  9. OLMESARTAN MEDOXOMIL AND HYDROCHLOROTHIZIDE [Concomitant]
     Route: 065
  10. KALINOR [Concomitant]
     Route: 065
  11. ZOVIRAX [Concomitant]
     Dosage: 600 MILLIGRAM
     Route: 048
  12. BUDENOFALK [Concomitant]
     Route: 065
  13. VIDAZA [Suspect]
     Indication: REFRACTORY ANAEMIA WITH AN EXCESS OF BLASTS
     Route: 065
     Dates: start: 20090910
  14. NITRENDIPINE [Concomitant]
     Route: 065

REACTIONS (3)
  - ACUTE GRAFT VERSUS HOST DISEASE IN SKIN [None]
  - ACUTE GRAFT VERSUS HOST DISEASE IN LIVER [None]
  - BRONCHOPULMONARY ASPERGILLOSIS [None]
